FAERS Safety Report 6664321-4 (Version None)
Quarter: 2010Q2

REPORT INFORMATION
  Report Type: 
  Country: None (occurrence: None)
  Receive Date: 20100401
  Receipt Date: 20100325
  Transmission Date: 20101027
  Serious: Yes (Other)
  Sender: FDA-Public Use
  Company Number: TR-ABBOTT-10P-161-0635627-00

PATIENT
  Age: 37 Year
  Sex: Female

DRUGS (10)
  1. VALPROATE SODIUM [Suspect]
     Indication: BIPOLAR I DISORDER
     Dosage: NOT REPORTED
  2. VALPROATE SODIUM [Suspect]
     Indication: DEPRESSION
  3. LITHIUM [Suspect]
     Indication: BIPOLAR I DISORDER
     Dosage: NOT REPORTED
  4. LITHIUM [Suspect]
     Indication: DEPRESSION
  5. CHLORPROMAZINE [Suspect]
     Indication: BIPOLAR I DISORDER
     Dosage: NOT REPORTED
  6. CHLORPROMAZINE [Suspect]
     Indication: DEPRESSION
  7. RISPERIDONE [Suspect]
     Indication: BIPOLAR I DISORDER
     Dosage: NOT REPORTED
  8. RISPERIDONE [Suspect]
     Indication: DEPRESSION
  9. SERTRALINE HCL [Suspect]
     Indication: BIPOLAR I DISORDER
     Dosage: NOT REPORTED
  10. SERTRALINE HCL [Suspect]
     Indication: DEPRESSION

REACTIONS (1)
  - NEUROLEPTIC MALIGNANT SYNDROME [None]
